FAERS Safety Report 4835154-6 (Version None)
Quarter: 2005Q4

REPORT INFORMATION
  Report Type: 
  Country: None (occurrence: None)
  Receive Date: 20051114
  Receipt Date: 20051028
  Transmission Date: 20060501
  Serious: Yes (Other)
  Sender: FDA-Public Use
  Company Number: 141005001/251 AE

PATIENT
  Age: 67 Year
  Sex: Male

DRUGS (3)
  1. TESTIM [Suspect]
     Indication: HYPOGONADISM
     Dosage: 50 MG, DAILY, TRANSDERMAL
     Route: 062
     Dates: start: 20040428, end: 20040903
  2. ALEVE [Concomitant]
  3. SEPTRA [Concomitant]

REACTIONS (1)
  - PROSTATE CANCER [None]
